FAERS Safety Report 16760785 (Version 2)
Quarter: 2019Q3

REPORT INFORMATION
  Report Type: Spontaneous
  Country: US (occurrence: US)
  Receive Date: 20190830
  Receipt Date: 20190924
  Transmission Date: 20191005
  Serious: Yes (Other)
  Sender: FDA-Public Use
  Company Number: US-PFIZER INC-2019371735

PATIENT
  Age: 55 Year
  Sex: Female

DRUGS (3)
  1. SKELAXIN [Suspect]
     Active Substance: METAXALONE
     Indication: INTERVERTEBRAL DISC DEGENERATION
  2. SKELAXIN [Suspect]
     Active Substance: METAXALONE
     Indication: FIBROMYALGIA
     Dosage: UNK
  3. CELEBREX [Concomitant]
     Active Substance: CELECOXIB

REACTIONS (6)
  - Mental impairment [Unknown]
  - Anxiety [Unknown]
  - Feeling abnormal [Unknown]
  - Stress [Unknown]
  - Memory impairment [Unknown]
  - Depression [Unknown]
